FAERS Safety Report 5257060-8 (Version None)
Quarter: 2007Q1

REPORT INFORMATION
  Report Type: 
  Country: None (occurrence: None)
  Receive Date: 20070302
  Receipt Date: 20070215
  Transmission Date: 20070707
  Serious: Yes (Death, Other)
  Sender: FDA-Public Use
  Company Number: IMP_0872_2005

PATIENT
  Age: 36 Year
  Sex: Male
  Weight: 145.151 kg

DRUGS (7)
  1. BUPROPION HCL [Suspect]
     Indication: DEPRESSION
     Dosage: 300 MG QD PO
     Route: 048
     Dates: start: 20050501, end: 20050619
  2. ENALAPRIL MALEATE [Concomitant]
  3. LOVASTATIN [Concomitant]
  4. INDOMETHACIN [Concomitant]
  5. SEROQUEL [Concomitant]
  6. PREVACID [Concomitant]
  7. HYDROCHLOROTHIAZIDE [Concomitant]

REACTIONS (6)
  - CRYING [None]
  - DEPRESSION [None]
  - INSOMNIA [None]
  - MOOD SWINGS [None]
  - PHARMACEUTICAL PRODUCT COMPLAINT [None]
  - SUICIDAL BEHAVIOUR [None]
